FAERS Safety Report 5624953-9 (Version None)
Quarter: 2008Q1

REPORT INFORMATION
  Report Type: 
  Country: None (occurrence: None)
  Receive Date: 20080213
  Receipt Date: 20080130
  Transmission Date: 20080703
  Serious: Yes (Death, Other)
  Sender: FDA-Public Use
  Company Number: GB-RANBAXY-2008RR-12854

PATIENT

DRUGS (19)
  1. SIMVASTATIN [Suspect]
     Indication: TRANSIENT ISCHAEMIC ATTACK
     Dosage: 40 MG, UNK
     Route: 048
     Dates: start: 20071204, end: 20071211
  2. AMIODARONE HCL [Concomitant]
     Indication: ATRIAL FIBRILLATION
     Dosage: UNK
     Route: 042
     Dates: start: 20071212
  3. BECLOMETHASONE DIPROPIONATE [Concomitant]
     Indication: ASTHMA
     Dosage: 2 DF, BID
     Route: 055
     Dates: start: 20050908, end: 20071130
  4. BENDRODFLUMETHIAZIDE [Concomitant]
     Indication: HYPERTENSION
     Dosage: 2.5 MG, QD
     Route: 048
     Dates: start: 20071126, end: 20071205
  5. BISOPROLOL 10MG TABLETS [Concomitant]
     Indication: ATRIAL FIBRILLATION
     Dosage: 1.25 MG, QD
     Route: 048
     Dates: start: 20071202, end: 20071211
  6. CALCIUM GLUCONATE [Concomitant]
     Indication: HYPERKALAEMIA
     Dosage: 10 ML, UNK
     Route: 042
     Dates: start: 20071212, end: 20071212
  7. CARBOMER [Concomitant]
     Dosage: 1 DF, BID
     Route: 047
     Dates: start: 20071121, end: 20071130
  8. CO-CODAMOL [Concomitant]
     Indication: PAIN
     Dosage: 2 DF, PRN
     Route: 048
     Dates: start: 20010531, end: 20071211
  9. DIGOXIN [Concomitant]
     Indication: ATRIAL FIBRILLATION
     Dosage: 500 MG, UNK
     Route: 042
     Dates: start: 20071211, end: 20071211
  10. FERROUS SULPHATE 200MG TABLETS [Concomitant]
     Indication: ANAEMIA
     Dosage: 200 MG, TID
     Route: 048
     Dates: start: 20071120, end: 20071211
  11. IPRATROPIUM BROMIDE [Concomitant]
     Indication: ASTHMA
     Dosage: 500 UG, UNK
     Route: 055
     Dates: start: 20071211, end: 20071217
  12. MOVICOL [Concomitant]
     Indication: CONSTIPATION
     Dosage: 1 DF, BID
     Route: 048
     Dates: start: 20071206, end: 20071211
  13. OMEPRAZOLE [Concomitant]
     Indication: DUODENAL ULCER
     Dosage: 20 MG, QD
     Route: 048
     Dates: start: 20071120, end: 20071130
  14. OMEPRAZOLE [Concomitant]
     Dosage: 40 MG, QD
     Route: 048
     Dates: start: 20071130, end: 20071217
  15. RAMIPRIL [Concomitant]
     Indication: HYPERTENSION
     Dosage: 5 MG, QD
     Route: 048
     Dates: start: 20071022, end: 20071211
  16. SALBUTAMOL TABLETS BP 2MG [Concomitant]
     Indication: ASTHMA
     Dosage: 1 DF, QID
     Route: 055
     Dates: start: 20050908, end: 20071211
  17. SALBUTAMOL TABLETS BP 2MG [Concomitant]
     Dosage: 2 DF, PRN
     Route: 055
     Dates: start: 20071211, end: 20071218
  18. SERETIDE [Concomitant]
     Indication: ASTHMA
     Dosage: 1 DF, BID
     Route: 055
     Dates: start: 20070718, end: 20071211
  19. WARFARIN SODIUM [Concomitant]
     Indication: ATRIAL FIBRILLATION
     Dosage: 1 DF, QD
     Route: 048
     Dates: start: 20071206, end: 20071211

REACTIONS (6)
  - ALANINE AMINOTRANSFERASE INCREASED [None]
  - BLOOD ALBUMIN DECREASED [None]
  - HEPATIC FAILURE [None]
  - INTERNATIONAL NORMALISED RATIO INCREASED [None]
  - LIVER FUNCTION TEST ABNORMAL [None]
  - PNEUMONIA [None]
